FAERS Safety Report 14103992 (Version 1)
Quarter: 2017Q4

REPORT INFORMATION
  Report Type: Spontaneous
  Country: US (occurrence: US)
  Receive Date: 20171018
  Receipt Date: 20171018
  Transmission Date: 20180321
  Serious: Yes (Other)
  Sender: FDA-Public Use
  Company Number: US-AMGEN-USASP2017094023

PATIENT
  Age: 70 Year
  Sex: Female

DRUGS (1)
  1. PROLIA [Suspect]
     Active Substance: DENOSUMAB
     Indication: OSTEOPOROSIS POSTMENOPAUSAL
     Dosage: 60 MG, Q6MO
     Route: 065
     Dates: start: 20170525

REACTIONS (8)
  - Atrial fibrillation [Not Recovered/Not Resolved]
  - Coronary artery disease [Unknown]
  - Cough [Unknown]
  - Dyspnoea [Unknown]
  - Asthenia [Unknown]
  - Palpitations [Not Recovered/Not Resolved]
  - Dyspepsia [Unknown]
  - Intentional product misuse [Unknown]

NARRATIVE: CASE EVENT DATE: 201706
